FAERS Safety Report 23289223 (Version 1)
Quarter: 2023Q4

REPORT INFORMATION
  Report Type: Spontaneous
  Country: US (occurrence: US)
  Receive Date: 20231212
  Receipt Date: 20231212
  Transmission Date: 20240110
  Serious: No
  Sender: FDA-Public Use
  Company Number: US-SANOFI-01841669

PATIENT
  Age: 39 Year
  Sex: Male

DRUGS (4)
  1. DUPIXENT [Suspect]
     Active Substance: DUPILUMAB
     Indication: Eczema
     Dosage: 300 MG, QOW
     Route: 058
     Dates: start: 20230906
  2. HYDROXYZINE HYDROCHLORIDE [Concomitant]
     Active Substance: HYDROXYZINE HYDROCHLORIDE
     Dosage: 25 MG NIGHTLY, CAN TAKE 50 MG IF NEEDED
  3. PRAVASTATIN SODIUM [Concomitant]
     Active Substance: PRAVASTATIN SODIUM
     Dosage: 40 MG NIGHTLY
  4. IBUPROFEN [Concomitant]
     Active Substance: IBUPROFEN

REACTIONS (7)
  - Sleep disorder due to a general medical condition [Unknown]
  - Eczema [Unknown]
  - Erythema [Recovering/Resolving]
  - Pruritus [Unknown]
  - Dry skin [Unknown]
  - Eye discharge [Unknown]
  - Intercepted product storage error [Unknown]

NARRATIVE: CASE EVENT DATE: 20230101
